FAERS Safety Report 19736328 (Version 1)
Quarter: 2021Q3

REPORT INFORMATION
  Report Type: Spontaneous
  Country: DE (occurrence: DE)
  Receive Date: 20210824
  Receipt Date: 20210824
  Transmission Date: 20211014
  Serious: Yes (Hospitalization)
  Sender: FDA-Public Use
  Company Number: DE-TEVA-2021-DE-1943390

PATIENT
  Age: 76 Year
  Sex: Female
  Weight: 60 kg

DRUGS (13)
  1. CARBOPLATIN. [Suspect]
     Active Substance: CARBOPLATIN
     Dosage: ACCORDING TO THE SCHEME
  2. KALIUMCITRAT [Concomitant]
     Active Substance: POTASSIUM CITRATE
     Dosage: 1 DOSAGE FORMS DAILY; 1?0?0?0
  3. CLINDAMYCIN. [Concomitant]
     Active Substance: CLINDAMYCIN
     Dosage: 300 MILLIGRAM DAILY; 1?0?0?0
  4. PACLITAXEL. [Suspect]
     Active Substance: PACLITAXEL
     Dosage: ACCORDING TO THE SCHEME
  5. PANTOPRAZOL [Concomitant]
     Active Substance: PANTOPRAZOLE SODIUM
     Dosage: 40 MILLIGRAM DAILY; 1?0?0?0
  6. TOREMIFEN [Concomitant]
     Active Substance: TOREMIFENE
     Dosage: 10 MG, 2?1?0?0
  7. METAMIZOL [Concomitant]
     Active Substance: METAMIZOLE SODIUM
     Dosage: 500 MG, AS NEEDED
  8. DICLOFENAC [Concomitant]
     Active Substance: DICLOFENAC
     Dosage: 75 MG, AS NEEDED
  9. ALLOPURINOL. [Concomitant]
     Active Substance: ALLOPURINOL
     Dosage: 300 MILLIGRAM DAILY;  0?0?1?0
  10. LEVOTHYROXINE SODIUM. [Concomitant]
     Active Substance: LEVOTHYROXINE SODIUM
     Dosage: 137 MICROGRAM DAILY; 1?0?0?0
  11. PIPAMPERON [Concomitant]
     Active Substance: PIPAMPERONE HYDROCHLORIDE
     Dosage: 40 MILLIGRAM DAILY; 0?0?1?0
  12. TILIDINE/NALOXONE [Concomitant]
     Active Substance: NALOXONE HYDROCHLORIDE\TILIDINE HYDROCHLORIDE
     Dosage: 2 DOSAGE FORMS DAILY; 100|8 MG, 1?0?1?0
  13. MACROGOL [Concomitant]
     Active Substance: POLYETHYLENE GLYCOLS
     Dosage: 1 DOSAGE FORMS DAILY; 1?0?0?0

REACTIONS (6)
  - Dry skin [Unknown]
  - Nausea [Unknown]
  - Dehydration [Unknown]
  - Fall [Unknown]
  - Cachexia [Unknown]
  - General physical health deterioration [Unknown]
